FAERS Safety Report 22318408 (Version 2)
Quarter: 2023Q2

REPORT INFORMATION
  Report Type: Spontaneous
  Country: CN (occurrence: CN)
  Receive Date: 20230515
  Receipt Date: 20230517
  Transmission Date: 20230721
  Serious: Yes (Other)
  Sender: FDA-Public Use
  Company Number: CN-009507513-2305CHN002673

PATIENT
  Sex: Male
  Weight: 55 kg

DRUGS (18)
  1. CILASTATIN SODIUM\IMIPENEM [Suspect]
     Active Substance: CILASTATIN SODIUM\IMIPENEM
     Indication: Fungal skin infection
     Dosage: 0.5 G Q8H
     Route: 041
     Dates: start: 20230426, end: 20230504
  2. LINEZOLID [Suspect]
     Active Substance: LINEZOLID
     Indication: Fungal skin infection
     Dosage: 0.6 G Q12H
     Route: 041
     Dates: start: 20230424, end: 20230501
  3. MICAFUNGIN SODIUM [Suspect]
     Active Substance: MICAFUNGIN SODIUM
     Indication: Soft tissue infection
     Dosage: 0.15 G QD
     Route: 041
     Dates: start: 20230426, end: 20230504
  4. MICAFUNGIN SODIUM [Suspect]
     Active Substance: MICAFUNGIN SODIUM
     Indication: Fungal infection
  5. HERBALS [Suspect]
     Active Substance: HERBALS
     Indication: Shock
     Dosage: 50 ML BID
     Route: 041
     Dates: start: 20230425, end: 20230504
  6. DONEPEZIL HYDROCHLORIDE [Suspect]
     Active Substance: DONEPEZIL HYDROCHLORIDE
     Indication: Dementia Alzheimer^s type
     Dosage: 5 MG QD
     Route: 045
     Dates: start: 20230425, end: 20230504
  7. CARBOHYDRATES\FATTY ACIDS\MINERALS\PROTEIN\VITAMINS [Suspect]
     Active Substance: CARBOHYDRATES\FATTY ACIDS\MINERALS\PROTEIN\VITAMINS
     Indication: Enteral nutrition
     Dosage: 500 ML QD
     Route: 045
     Dates: start: 20230429, end: 20230503
  8. ILAPRAZOLE [Concomitant]
     Active Substance: ILAPRAZOLE
     Indication: Prophylaxis
     Dosage: 10 MG BID
     Route: 041
     Dates: start: 20230425, end: 20230504
  9. AMINO ACIDS, SOURCE UNSPECIFIED [Concomitant]
     Active Substance: AMINO ACIDS, SOURCE UNSPECIFIED
     Indication: Nutritional supplementation
     Dosage: 500 ML QD
     Route: 041
     Dates: start: 20230425, end: 20230504
  10. AMINO ACIDS, SOURCE UNSPECIFIED [Concomitant]
     Active Substance: AMINO ACIDS, SOURCE UNSPECIFIED
     Indication: Sedation
  11. AMINO ACIDS, SOURCE UNSPECIFIED [Concomitant]
     Active Substance: AMINO ACIDS, SOURCE UNSPECIFIED
     Indication: Blood pressure management
  12. AMINO ACIDS, SOURCE UNSPECIFIED [Concomitant]
     Active Substance: AMINO ACIDS, SOURCE UNSPECIFIED
     Indication: Fluid replacement
  13. AMINO ACIDS, SOURCE UNSPECIFIED [Concomitant]
     Active Substance: AMINO ACIDS, SOURCE UNSPECIFIED
     Indication: Analgesic therapy
  14. FAT EMULSION INJECTION (C14-24) [Concomitant]
     Indication: Nutritional supplementation
     Dosage: 250 ML QD
     Route: 041
     Dates: start: 20230425, end: 20230504
  15. FAT EMULSION INJECTION (C14-24) [Concomitant]
     Indication: Sedation
  16. FAT EMULSION INJECTION (C14-24) [Concomitant]
     Indication: Blood pressure management
  17. FAT EMULSION INJECTION (C14-24) [Concomitant]
     Indication: Fluid replacement
  18. FAT EMULSION INJECTION (C14-24) [Concomitant]
     Indication: Analgesic therapy

REACTIONS (3)
  - Mechanical ventilation [Unknown]
  - Diarrhoea [Recovering/Resolving]
  - Product use in unapproved indication [Unknown]

NARRATIVE: CASE EVENT DATE: 20230101
